FAERS Safety Report 6268951-3 (Version None)
Quarter: 2009Q3

REPORT INFORMATION
  Report Type: 
  Country: None (occurrence: None)
  Receive Date: 20090714
  Receipt Date: 20090714
  Transmission Date: 20100115
  Serious: Yes (Other)
  Sender: FDA-Public Use
  Company Number: None

PATIENT
  Age: 8 Year
  Sex: Male
  Weight: 23.587 kg

DRUGS (2)
  1. MIRALAX [Suspect]
     Indication: CONSTIPATION
     Dosage: 17G ONCE A DAY PO
     Route: 048
     Dates: start: 20081201, end: 20090404
  2. MIRALAX [Suspect]
     Indication: DIARRHOEA
     Dosage: 17G ONCE A DAY PO
     Route: 048
     Dates: start: 20081201, end: 20090404

REACTIONS (4)
  - ABNORMAL BEHAVIOUR [None]
  - AGGRESSION [None]
  - ANGER [None]
  - DRUG PRESCRIBING ERROR [None]
